FAERS Safety Report 16981830 (Version 3)
Quarter: 2020Q1

REPORT INFORMATION
  Report Type: Spontaneous
  Country: AU (occurrence: AU)
  Receive Date: 20191101
  Receipt Date: 20200117
  Transmission Date: 20200409
  Serious: Yes (Other)
  Sender: FDA-Public Use
  Company Number: AU-AMGEN-AUSSP2019180525

PATIENT
  Age: 48 Year
  Sex: Male

DRUGS (2)
  1. AIMOVIG [Suspect]
     Active Substance: ERENUMAB-AOOE
     Dosage: 70 MILLIGRAM, QMO
     Route: 058
     Dates: start: 201906
  2. AIMOVIG [Suspect]
     Active Substance: ERENUMAB-AOOE
     Indication: MIGRAINE
     Dosage: 70 MILLIGRAM, QMO
     Route: 058
     Dates: start: 201906, end: 201912

REACTIONS (8)
  - Troponin increased [Recovered/Resolved]
  - Influenza like illness [Unknown]
  - Myalgia [Unknown]
  - Chest pain [Unknown]
  - Pericarditis [Recovered/Resolved]
  - Electrocardiogram abnormal [Recovered/Resolved]
  - Pleuritic pain [Unknown]
  - Vomiting [Unknown]

NARRATIVE: CASE EVENT DATE: 20191011
